FAERS Safety Report 7545209-3 (Version None)
Quarter: 2011Q2

REPORT INFORMATION
  Report Type: 
  Country: None (occurrence: None)
  Receive Date: 20110614
  Receipt Date: 20110531
  Transmission Date: 20111010
  Serious: Yes (Other)
  Sender: FDA-Public Use
  Company Number: CA-JNJFOC-20110601284

PATIENT
  Sex: Male
  Weight: 85 kg

DRUGS (4)
  1. CALCIUM CARBONATE [Concomitant]
     Indication: MINERAL SUPPLEMENTATION
  2. REMICADE [Suspect]
     Indication: CROHN'S DISEASE
     Route: 042
     Dates: start: 20090501
  3. REMICADE [Suspect]
     Route: 042
     Dates: start: 20090401
  4. VITAMIN D [Concomitant]

REACTIONS (2)
  - EYE LASER SURGERY [None]
  - ALANINE AMINOTRANSFERASE INCREASED [None]
